FAERS Safety Report 10687797 (Version 1)
Quarter: 2014Q4

REPORT INFORMATION
  Report Type: Spontaneous
  Country: FR (occurrence: None)
  Receive Date: 20141230
  Receipt Date: 20141230
  Transmission Date: 20150529
  Serious: Yes (Hospitalization)
  Sender: FDA-Public Use
  Company Number: 2679391

PATIENT
  Age: 72 Year
  Sex: Female

DRUGS (10)
  1. (VINCRISTINE SULFATE) [Suspect]
     Active Substance: VINCRISTINE SULFATE
     Indication: ACUTE LYMPHOCYTIC LEUKAEMIA
     Dates: start: 20141102, end: 20141102
  2. ZAVEDOS [Suspect]
     Active Substance: IDARUBICIN
     Indication: ACUTE LYMPHOCYTIC LEUKAEMIA
     Dates: start: 20141102, end: 20141103
  3. ARACYTINE [Suspect]
     Active Substance: CYTARABINE
     Indication: ACUTE LYMPHOCYTIC LEUKAEMIA
     Route: 037
     Dates: start: 20141106, end: 20141106
  4. (CYCLOPHOSPHAMIDE) [Suspect]
     Active Substance: CYCLOPHOSPHAMIDE
     Indication: ACUTE LYMPHOCYTIC LEUKAEMIA
     Dosage: 470 MG MILLIGRAM(S)  (1 DAY )  INTRAVENOUS (NOT OTHERWISE SPECIFIED)
     Route: 042
     Dates: start: 20141118, end: 20141120
  5. (NEBIVOLOL) [Concomitant]
  6. (METHOTREXATE) [Suspect]
     Active Substance: METHOTREXATE
     Indication: ACUTE LYMPHOCYTIC LEUKAEMIA
     Dosage: INTRATHECAL
     Route: 037
     Dates: start: 20141029, end: 20141029
  7. (INEXIUM) [Concomitant]
  8. (ROCEPHINE) [Concomitant]
  9. (ZELITREX) [Concomitant]
  10. (VANCOMYCINE SANDOZ) [Concomitant]

REACTIONS (6)
  - Metastases to meninges [None]
  - Aphasia [None]
  - Facial paresis [None]
  - Dysarthria [None]
  - Pyrexia [None]
  - Confusional state [None]

NARRATIVE: CASE EVENT DATE: 20141119
